FAERS Safety Report 7882884-8 (Version None)
Quarter: 2011Q4

REPORT INFORMATION
  Report Type: 
  Country: None (occurrence: None)
  Receive Date: 20111101
  Receipt Date: 20110621
  Transmission Date: 20120403
  Serious: No
  Sender: FDA-Public Use
  Company Number: US-AMGEN-USASP2011031653

PATIENT
  Age: 53 Year
  Sex: Female
  Weight: 79.365 kg

DRUGS (9)
  1. ENBREL [Suspect]
     Indication: PRODUCT USED FOR UNKNOWN INDICATION
     Dosage: 50 MG, QWK
     Route: 058
  2. MAGNESIUM [Concomitant]
     Dosage: 200 MG, UNK
  3. FOLIC ACID [Concomitant]
     Dosage: 1 MG, UNK
  4. LOVAZA [Concomitant]
     Dosage: 340 MG, UNK
  5. PLAQUENIL [Concomitant]
     Dosage: 200 MG, UNK
  6. METHOTREXATE [Concomitant]
     Dosage: 2.5 MG, UNK
  7. MULTI-VITAMIN [Concomitant]
     Dosage: UNK
  8. CRESTOR [Concomitant]
     Dosage: 10 MG, UNK
  9. CALCIUM D [Concomitant]
     Dosage: UNK

REACTIONS (1)
  - RASH PRURITIC [None]
